FAERS Safety Report 24136946 (Version 3)
Quarter: 2024Q3

REPORT INFORMATION
  Report Type: Spontaneous
  Country: IT (occurrence: US)
  Receive Date: 20240725
  Receipt Date: 20240903
  Transmission Date: 20241017
  Serious: Yes (Other)
  Sender: MERCK
  Company Number: US-009507513-2407USA004605

PATIENT
  Age: 35 Year
  Sex: Female

DRUGS (1)
  1. KEYTRUDA [Suspect]
     Active Substance: PEMBROLIZUMAB
     Indication: Metastatic gastric cancer
     Dosage: 200 MILLIGRAM, EVERY 21 DAYS (Q3W)
     Route: 065
     Dates: start: 20230102

REACTIONS (4)
  - Immune thrombocytopenia [Unknown]
  - Premature labour [Recovered/Resolved]
  - Splenomegaly [Unknown]
  - Maternal exposure during pregnancy [Recovered/Resolved]

NARRATIVE: CASE EVENT DATE: 20230419
